FAERS Safety Report 5391751-3 (Version None)
Quarter: 2007Q3

REPORT INFORMATION
  Report Type: 
  Country: None (occurrence: None)
  Receive Date: 20070717
  Receipt Date: 20070704
  Transmission Date: 20080115
  Serious: Yes (Death)
  Sender: FDA-Public Use
  Company Number: GXKR2007GB05824

PATIENT

DRUGS (6)
  1. SIMVASTATIN [Suspect]
     Indication: RENAL FAILURE CHRONIC
     Dosage: 40 MG
     Dates: start: 20070419, end: 20070524
  2. ADCAL-D3 (CALCIUM CARBONATE, COLECALCIFEROL) [Concomitant]
  3. ALENDRONATE SODIUM [Concomitant]
  4. AMITRIPTYLINE HCL [Concomitant]
  5. CODEINE PHOSPHATE AND ACETAMINOPHEN [Concomitant]
  6. OMEPRAZOLE [Concomitant]

REACTIONS (2)
  - ACUTE MYOCARDIAL INFARCTION [None]
  - TREATMENT NONCOMPLIANCE [None]
